FAERS Safety Report 6664646-2 (Version None)
Quarter: 2010Q1

REPORT INFORMATION
  Report Type: 
  Country: None (occurrence: None)
  Receive Date: 20100330
  Receipt Date: 20100318
  Transmission Date: 20100710
  Serious: Yes (Other)
  Sender: FDA-Public Use
  Company Number: FABR-1000697

PATIENT
  Age: 17 Year
  Sex: Male
  Weight: 55 kg

DRUGS (3)
  1. FABRAZYME [Suspect]
     Indication: FABRY'S DISEASE
     Dosage: 70 MG, INTRAVENOUS; 0.2MG/KG, INTRAVENOUS
     Route: 042
     Dates: start: 20090101
  2. FABRAZYME [Suspect]
     Indication: FABRY'S DISEASE
     Dosage: 70 MG, INTRAVENOUS; 0.2MG/KG, INTRAVENOUS
     Route: 042
     Dates: start: 20090226
  3. REPLAGAL (AGALSIDASE ALFA) [Concomitant]

REACTIONS (5)
  - DERMATITIS ATOPIC [None]
  - ECZEMA INFECTED [None]
  - PRURITUS [None]
  - STAPHYLOCOCCAL INFECTION [None]
  - STREPTOCOCCAL INFECTION [None]
